FAERS Safety Report 5223815-9 (Version None)
Quarter: 2007Q1

REPORT INFORMATION
  Report Type: 
  Country: None (occurrence: None)
  Receive Date: 20070130
  Receipt Date: 20070125
  Transmission Date: 20070707
  Serious: Yes (Other)
  Sender: FDA-Public Use
  Company Number: JP-BAYER-200710073BYL

PATIENT
  Age: 65 Year
  Sex: Male

DRUGS (5)
  1. CIPROXAN-I.V. [Suspect]
     Indication: ATYPICAL MYCOBACTERIAL INFECTION
     Route: 041
     Dates: start: 20061228
  2. CLARITHROMYCIN [Concomitant]
     Indication: ATYPICAL MYCOBACTERIAL INFECTION
     Dosage: TOTAL DAILY DOSE: 400 MG  UNIT DOSE: 200 MG
     Route: 048
     Dates: start: 20061225
  3. RIFADIN [Concomitant]
     Indication: ATYPICAL MYCOBACTERIAL INFECTION
     Dosage: TOTAL DAILY DOSE: 450 MG  UNIT DOSE: 150 MG
     Route: 048
     Dates: start: 20061225
  4. EBUTOL [Concomitant]
     Indication: ATYPICAL MYCOBACTERIAL INFECTION
     Dosage: TOTAL DAILY DOSE: 750 MG  UNIT DOSE: 125 MG
     Route: 048
     Dates: start: 20061225
  5. ISCOTIN [Concomitant]
     Indication: ATYPICAL MYCOBACTERIAL INFECTION
     Dosage: TOTAL DAILY DOSE: 200 MG  UNIT DOSE: 100 MG
     Route: 048
     Dates: start: 20061228

REACTIONS (2)
  - DERMATITIS EXFOLIATIVE [None]
  - RASH [None]
